FAERS Safety Report 8824898 (Version 1)
Quarter: 2012Q4

REPORT INFORMATION
  Report Type: Report from Study
  Country: US (occurrence: US)
  Receive Date: 20121004
  Receipt Date: 20121004
  Transmission Date: 20130627
  Serious: Yes (Hospitalization)
  Sender: FDA-Public Use
  Company Number: US-ROCHE-1135302

PATIENT
  Age: 86 Year
  Sex: Male
  Weight: 76.27 kg

DRUGS (1)
  1. XELODA [Suspect]
     Indication: COLON CANCER
     Route: 048
     Dates: start: 20120824

REACTIONS (3)
  - Abasia [Recovered/Resolved]
  - Dialysis [Unknown]
  - Nausea [Recovered/Resolved]
